FAERS Safety Report 6821795-3 (Version None)
Quarter: 2010Q3

REPORT INFORMATION
  Report Type: 
  Country: None (occurrence: None)
  Receive Date: 20100708
  Receipt Date: 20100113
  Transmission Date: 20110219
  Serious: Yes (Hospitalization)
  Sender: FDA-Public Use
  Company Number: US-ASTRAZENECA-2010SE31237

PATIENT
  Sex: Male

DRUGS (3)
  1. SEROQUEL [Suspect]
     Route: 048
     Dates: start: 20001025
  2. VIRACEPT [Concomitant]
     Dates: start: 20040706
  3. COMBIVIR [Concomitant]
     Dates: start: 20040706

REACTIONS (3)
  - FEMUR FRACTURE [None]
  - PNEUMONIA PRIMARY ATYPICAL [None]
  - RESPIRATORY DISTRESS [None]
